FAERS Safety Report 16369966 (Version 1)
Quarter: 2019Q2

REPORT INFORMATION
  Report Type: Spontaneous
  Country: PT (occurrence: PT)
  Receive Date: 20190530
  Receipt Date: 20190530
  Transmission Date: 20190711
  Serious: Yes (Disabling)
  Sender: FDA-Public Use
  Company Number: PT-TEVA-2019-PT-1057460

PATIENT
  Age: 45 Year
  Sex: Female

DRUGS (1)
  1. MIODIA 15 MG [Suspect]
     Active Substance: CYCLOBENZAPRINE
     Indication: FIBROMYALGIA
     Route: 048

REACTIONS (2)
  - Somnambulism [Recovered/Resolved]
  - Intentional product misuse [Unknown]
